FAERS Safety Report 6312361-7 (Version None)
Quarter: 2009Q3

REPORT INFORMATION
  Report Type: 
  Country: None (occurrence: None)
  Receive Date: 20090817
  Receipt Date: 20090806
  Transmission Date: 20100115
  Serious: No
  Sender: FDA-Public Use
  Company Number: US-B.I. PHARMACEUTICALS,INC./RIDGEFIELD-2009-BP-09317BP

PATIENT
  Sex: Female

DRUGS (3)
  1. COMBIVENT [Suspect]
     Indication: ASTHMA
     Dosage: 8 PUF
     Route: 055
     Dates: start: 19800101
  2. SINGULAIR [Concomitant]
     Indication: ASTHMA
  3. ADVAIR HFA [Concomitant]
     Indication: ASTHMA

REACTIONS (5)
  - BARRETT'S OESOPHAGUS [None]
  - DYSPEPSIA [None]
  - DYSPHAGIA [None]
  - HICCUPS [None]
  - OSTEOPOROSIS [None]
